FAERS Safety Report 20829365 (Version 5)
Quarter: 2022Q2

REPORT INFORMATION
  Report Type: Spontaneous
  Country: US (occurrence: US)
  Receive Date: 20220513
  Receipt Date: 20220627
  Transmission Date: 20220721
  Serious: No
  Sender: FDA-Public Use
  Company Number: US-PFIZER INC-202200597961

PATIENT
  Age: 47 Year
  Sex: Female

DRUGS (2)
  1. IBRANCE [Suspect]
     Active Substance: PALBOCICLIB
     Dosage: UNK
     Dates: start: 20220412, end: 20220623
  2. IBRANCE [Suspect]
     Active Substance: PALBOCICLIB
     Dosage: 125 MG
     Dates: start: 20220413

REACTIONS (7)
  - Back pain [Unknown]
  - Constipation [Recovering/Resolving]
  - Pain [Unknown]
  - Acne [Recovered/Resolved]
  - Condition aggravated [Unknown]
  - Contusion [Unknown]
  - Hypersensitivity [Unknown]
